FAERS Safety Report 5404736-5 (Version None)
Quarter: 2007Q3

REPORT INFORMATION
  Report Type: 
  Country: None (occurrence: None)
  Receive Date: 20070801
  Receipt Date: 20070717
  Transmission Date: 20080115
  Serious: Yes (Other)
  Sender: FDA-Public Use
  Company Number: 2007001018

PATIENT
  Age: 77 Year
  Sex: Male

DRUGS (22)
  1. ERLOTINIB (TABLET) [Suspect]
     Indication: PANCREATIC CARCINOMA
     Dosage: 100 MG (QD), ORAL
     Route: 048
     Dates: start: 20070516, end: 20070522
  2. GEMCITABINE [Suspect]
     Indication: PANCREATIC CARCINOMA
     Dosage: 1600 MG, INTRAVENOUS
     Route: 042
     Dates: start: 20070516, end: 20070516
  3. DEXAMETHASONE SODIUM PHOSPHATE [Concomitant]
  4. OXYCODONE HCL [Concomitant]
  5. SULINDAC [Concomitant]
  6. TEPRENONE (TEPRENONE) [Concomitant]
  7. RABEPRAZOLE SODIUM [Concomitant]
  8. FUROSEMIDE [Concomitant]
  9. AMLODIPINE BESYLATE [Concomitant]
  10. BERIZYM (BERIZYM) [Concomitant]
  11. URSODIOL (URSODEOXYCHOLIC ACID) [Concomitant]
  12. MAGNESIUM OXIDE (MAGNESIUM OXIDE) [Concomitant]
  13. SENNOSIDE [Concomitant]
  14. SODIUM BICARBONATE IN PLASTIC CONTAINER [Concomitant]
  15. INSULIN ASPART (INSULIN ASPART) [Concomitant]
  16. INSULIN HUMAN (INSULIN HUMAN) [Concomitant]
  17. LAXATIVE NOS [Concomitant]
  18. GLUCOSE (GLUCOSE) [Concomitant]
  19. SULBACTAM SODIUM (SULBACTAM SODIUM) [Concomitant]
  20. LECICARBON (LECICARBON) [Concomitant]
  21. SULTAMICILLIN TOSILATE (SULTAMICILLIN TOSILATE) [Concomitant]
  22. BERIZYM (BERIZYM) [Concomitant]

REACTIONS (21)
  - ABDOMINAL PAIN LOWER [None]
  - ANOREXIA [None]
  - BLOOD GLUCOSE INCREASED [None]
  - CARDIOMEGALY [None]
  - CHOLANGITIS [None]
  - DIARRHOEA [None]
  - EMPHYSEMA [None]
  - FAECALOMA [None]
  - HYPOGLYCAEMIA [None]
  - INTERSTITIAL LUNG DISEASE [None]
  - MALAISE [None]
  - METASTASES TO LUNG [None]
  - OEDEMA PERIPHERAL [None]
  - ORAL INTAKE REDUCED [None]
  - PLEURAL FIBROSIS [None]
  - PNEUMOBILIA [None]
  - PRURITUS [None]
  - PULMONARY FIBROSIS [None]
  - PULMONARY GRANULOMA [None]
  - RASH [None]
  - WHITE BLOOD CELL COUNT DECREASED [None]
